FAERS Safety Report 9966774 (Version 2)
Quarter: 2014Q1

REPORT INFORMATION
  Report Type: Report from Study
  Country: US (occurrence: US)
  Receive Date: 20140305
  Receipt Date: 20140305
  Transmission Date: 20141002
  Serious: No
  Sender: FDA-Public Use
  Company Number: US-ABBVIE-13P-163-1052276-00

PATIENT
  Age: 29 Year
  Sex: Female

DRUGS (10)
  1. HUMIRA [Suspect]
     Indication: PSORIASIS
     Dates: start: 20120216, end: 201304
  2. HUMIRA [Suspect]
     Indication: PSORIATIC ARTHROPATHY
     Dates: start: 201304
  3. CONTRACEPTIVES [Concomitant]
     Indication: CONTRACEPTION
  4. UNKNOWN TOPICALS [Concomitant]
     Indication: PSORIASIS
  5. SERTRALINE [Concomitant]
     Indication: ANXIETY
  6. METHYLPHENIDATE [Concomitant]
     Indication: ATTENTION DEFICIT/HYPERACTIVITY DISORDER
     Dosage: BID TO TID
  7. BIOTIN [Concomitant]
     Indication: VITAMIN SUPPLEMENTATION
  8. GREEN TEA [Concomitant]
     Indication: NUTRITIONAL SUPPLEMENTATION
  9. CHROMIUM PICOLINATE [Concomitant]
     Indication: MINERAL SUPPLEMENTATION
  10. MILK THISTLE [Concomitant]
     Indication: PHYTOTHERAPY

REACTIONS (9)
  - Psoriatic arthropathy [Unknown]
  - Injection site papule [Recovering/Resolving]
  - Injection site pruritus [Recovering/Resolving]
  - Injection site induration [Recovering/Resolving]
  - Injection site swelling [Recovering/Resolving]
  - Sinusitis [Unknown]
  - Sinusitis [Unknown]
  - Sinusitis [Recovering/Resolving]
  - Upper respiratory tract infection [Unknown]
